FAERS Safety Report 12084263 (Version 1)
Quarter: 2016Q1

REPORT INFORMATION
  Report Type: Spontaneous
  Country: US (occurrence: None)
  Receive Date: 20160216
  Receipt Date: 20160216
  Transmission Date: 20160526
  Serious: No
  Sender: FDA-Public Use
  Company Number: None

PATIENT
  Age: 72 Year
  Sex: Male
  Weight: 106 kg

DRUGS (13)
  1. TORSEMIDE. [Concomitant]
     Active Substance: TORSEMIDE
  2. TRIAMCINOLONE CREAM 0.1% [Concomitant]
     Active Substance: TRIAMCINOLONE
  3. CARVEDILOL. [Concomitant]
     Active Substance: CARVEDILOL
  4. POTASSIUM CHLORIDE. [Concomitant]
     Active Substance: POTASSIUM CHLORIDE
  5. INSULIN [Concomitant]
     Active Substance: INSULIN NOS
  6. ISOSORBIDE MONONITRATE. [Concomitant]
     Active Substance: ISOSORBIDE MONONITRATE
  7. LOSARTAN. [Concomitant]
     Active Substance: LOSARTAN
  8. APIXABAN 2.5 MG [Suspect]
     Active Substance: APIXABAN
     Indication: ATRIAL FIBRILLATION
     Dosage: 1 PILL BID ORAL
     Route: 048
  9. DOCUSATE [Concomitant]
     Active Substance: DOCUSATE
  10. ATORVASTATIN [Concomitant]
     Active Substance: ATORVASTATIN
  11. DIGOXIN. [Concomitant]
     Active Substance: DIGOXIN
  12. AMITRIPTYLINE [Concomitant]
     Active Substance: AMITRIPTYLINE
  13. FLUTICASONE [Concomitant]
     Active Substance: FLUTICASONE\FLUTICASONE PROPIONATE

REACTIONS (3)
  - Rash [None]
  - Neuralgia [None]
  - Myalgia [None]

NARRATIVE: CASE EVENT DATE: 20160106
